FAERS Safety Report 5610347-9 (Version None)
Quarter: 2008Q1

REPORT INFORMATION
  Report Type: 
  Country: None (occurrence: None)
  Receive Date: 20080131
  Receipt Date: 20080123
  Transmission Date: 20080703
  Serious: Yes (Hospitalization)
  Sender: FDA-Public Use
  Company Number: US-GILEAD-2008-0014921

PATIENT
  Sex: Female
  Weight: 83.99 kg

DRUGS (15)
  1. LETAIRIS [Suspect]
     Indication: PULMONARY HYPERTENSION
     Route: 048
     Dates: start: 20071216, end: 20071220
  2. LASIX [Concomitant]
     Route: 048
     Dates: end: 20071201
  3. LASIX [Concomitant]
     Route: 048
     Dates: start: 20071201
  4. VITAMIN B-12 [Concomitant]
     Route: 048
  5. FLUTICASONE PROPIONATE [Concomitant]
     Route: 055
  6. ACCUPRIL [Concomitant]
     Route: 048
  7. METFORMIN HCL [Concomitant]
     Route: 048
  8. NPH ILETIN II [Concomitant]
     Dosage: 70/30
     Route: 058
  9. PROZAC [Concomitant]
     Route: 048
  10. SYNTHROID [Concomitant]
     Route: 048
  11. COENZYME Q10 [Concomitant]
     Route: 048
  12. OMEPRAZOLE [Concomitant]
     Route: 048
  13. ALBUTEROL SULFATE AND IPRATROPIUM BROMIDE [Concomitant]
     Indication: DYSPNOEA
     Route: 055
  14. POTASSIUM CHLORIDE [Concomitant]
     Route: 048
  15. METOPROLOL TARTRATE [Concomitant]
     Route: 048

REACTIONS (1)
  - FLUID OVERLOAD [None]
